FAERS Safety Report 19365789 (Version 1)
Quarter: 2021Q2

REPORT INFORMATION
  Report Type: Spontaneous
  Country: TR (occurrence: TR)
  Receive Date: 20210602
  Receipt Date: 20210602
  Transmission Date: 20210717
  Serious: Yes (Hospitalization)
  Sender: FDA-Public Use
  Company Number: TR-VIIV HEALTHCARE LIMITED-TR2021GSK114358

PATIENT
  Age: 31 Year
  Sex: Male

DRUGS (3)
  1. INFLUENZA VACCINE [Concomitant]
     Active Substance: INFLUENZA VIRUS VACCINE
     Indication: PROPHYLAXIS
  2. ABACAVIR SULFATE + LAMIVUDINE [Suspect]
     Active Substance: ABACAVIR SULFATE\LAMIVUDINE
     Indication: HIV INFECTION
     Dosage: UNK
     Dates: start: 2017
  3. DOLUTEGRAVIR [Suspect]
     Active Substance: DOLUTEGRAVIR
     Indication: HIV INFECTION
     Dosage: UNK
     Dates: start: 2017

REACTIONS (6)
  - COVID-19 [Recovered/Resolved]
  - Virologic failure [Unknown]
  - Cough [Recovered/Resolved]
  - Anosmia [Recovered/Resolved]
  - Pyrexia [Recovered/Resolved]
  - Treatment noncompliance [Unknown]
